FAERS Safety Report 19635746 (Version 3)
Quarter: 2021Q4

REPORT INFORMATION
  Report Type: Spontaneous
  Country: MX (occurrence: None)
  Receive Date: 20210730
  Receipt Date: 20211125
  Transmission Date: 20220303
  Serious: Yes (Other)
  Sender: FDA-Public Use
  Company Number: MX-ROCHE-2880028

PATIENT
  Age: 77 Year
  Sex: Female
  Weight: 57 kg

DRUGS (4)
  1. AVASTIN [Suspect]
     Active Substance: BEVACIZUMAB
     Indication: Ovarian epithelial cancer recurrent
     Route: 042
     Dates: start: 202012
  2. PACLITAXEL [Concomitant]
     Active Substance: PACLITAXEL
     Dosage: DOSE AND FREQUENCY ARE UNKNOWN
     Dates: start: 202012
  3. OLAPARIB [Concomitant]
     Active Substance: OLAPARIB
     Dosage: DOSE AND FREQUENCY ARE UNKNOWN
     Dates: start: 202106
  4. ACETAMINOPHEN [Concomitant]
     Active Substance: ACETAMINOPHEN
     Route: 048
     Dates: start: 202107, end: 202107

REACTIONS (15)
  - Toxicity to various agents [Unknown]
  - Mucosal inflammation [Unknown]
  - Neuropathy peripheral [Unknown]
  - Tumour marker increased [Recovering/Resolving]
  - Drug resistance [Unknown]
  - Burn oesophageal [Unknown]
  - Nail discolouration [Unknown]
  - Onychomadesis [Unknown]
  - Palmar-plantar erythrodysaesthesia syndrome [Unknown]
  - Diarrhoea [Unknown]
  - Polyuria [Not Recovered/Not Resolved]
  - Appetite disorder [Recovered/Resolved]
  - Bladder irritation [Not Recovered/Not Resolved]
  - Infection [Recovering/Resolving]
  - Nodule [Recovering/Resolving]

NARRATIVE: CASE EVENT DATE: 20201201
